FAERS Safety Report 9847174 (Version 2)
Quarter: 2014Q1

REPORT INFORMATION
  Report Type: Spontaneous
  Country: US (occurrence: US)
  Receive Date: 20140127
  Receipt Date: 20140127
  Transmission Date: 20141002
  Serious: Yes (Death, Other)
  Sender: FDA-Public Use
  Company Number: US-US-EMD SERONO, INC.-233829K06USA

PATIENT
  Age: 49 Year
  Sex: Female

DRUGS (1)
  1. REBIF [Suspect]
     Indication: MULTIPLE SCLEROSIS
     Route: 058
     Dates: start: 20050616, end: 2007

REACTIONS (5)
  - Leiomyosarcoma [Fatal]
  - Mixed connective tissue disease [Unknown]
  - Dengue fever [Unknown]
  - Multiple sclerosis relapse [Unknown]
  - Injection site reaction [Unknown]
